FAERS Safety Report 15534933 (Version 3)
Quarter: 2019Q1

REPORT INFORMATION
  Report Type: Report from Study
  Country: CA (occurrence: CA)
  Receive Date: 20181022
  Receipt Date: 20190215
  Transmission Date: 20190417
  Serious: Yes (Hospitalization)
  Sender: FDA-Public Use
  Company Number: CA-TAKEDA-2018TUS030178

PATIENT
  Age: 70 Year
  Sex: Male

DRUGS (6)
  1. VEDOLIZUMAB [Suspect]
     Active Substance: VEDOLIZUMAB
     Indication: CROHN^S DISEASE
     Dosage: 300 MILLIGRAM, UNK
     Route: 042
     Dates: start: 20170808
  2. BUDESONIDE. [Concomitant]
     Active Substance: BUDESONIDE
     Dosage: UNK
  3. BISOPROLOL [Concomitant]
     Active Substance: BISOPROLOL
     Dosage: UNK
  4. ESOMEPRAZOLE. [Concomitant]
     Active Substance: ESOMEPRAZOLE MAGNESIUM
     Dosage: UNK
  5. PREDNISONE. [Concomitant]
     Active Substance: PREDNISONE
     Dosage: UNK
  6. ASA [Concomitant]
     Active Substance: ASPIRIN
     Dosage: UNK

REACTIONS (5)
  - Immune system disorder [Unknown]
  - Lung infection [Unknown]
  - Crohn^s disease [Unknown]
  - Gastrointestinal infection [Unknown]
  - Pneumonia [Unknown]
